FAERS Safety Report 8276840-8 (Version None)
Quarter: 2012Q2

REPORT INFORMATION
  Report Type: 
  Country: None (occurrence: None)
  Receive Date: 20120412
  Receipt Date: 20120330
  Transmission Date: 20120825
  Serious: Yes (Hospitalization, Disabling)
  Sender: FDA-Public Use
  Company Number: KR-SANOFI-AVENTIS-2012SA025239

PATIENT
  Age: 69 Year
  Sex: Female

DRUGS (4)
  1. METHOTREXATE [Suspect]
     Indication: RHEUMATOID ARTHRITIS
     Route: 065
  2. METHOTREXATE [Suspect]
     Route: 048
  3. ARAVA [Suspect]
     Indication: RHEUMATOID ARTHRITIS
     Route: 048
  4. HYDROXYCHLOROQUINE SULFATE [Concomitant]

REACTIONS (10)
  - ARTHRITIS [None]
  - ARTHRALGIA [None]
  - RED BLOOD CELL SEDIMENTATION RATE INCREASED [None]
  - MOBILITY DECREASED [None]
  - ERYTHEMA [None]
  - INFECTIVE TENOSYNOVITIS [None]
  - OEDEMA PERIPHERAL [None]
  - EXCORIATION [None]
  - C-REACTIVE PROTEIN INCREASED [None]
  - SKIN LESION [None]
